FAERS Safety Report 7057241-7 (Version None)
Quarter: 2010Q4

REPORT INFORMATION
  Report Type: 
  Country: None (occurrence: None)
  Receive Date: 20101022
  Receipt Date: 20101007
  Transmission Date: 20110411
  Serious: Yes (Other)
  Sender: FDA-Public Use
  Company Number: IT-PFIZER INC-2010131821

PATIENT
  Age: 62 Year
  Sex: Female

DRUGS (3)
  1. SERTRALINE HYDROCHLORIDE [Suspect]
     Indication: PATHOLOGICAL GAMBLING
     Dosage: 50 MG/DAY
  2. PRAMIPEXOLE [Suspect]
     Indication: PARKINSON'S DISEASE
     Dosage: 2.1 MG/DAY
  3. SELEGILINE [Suspect]
     Indication: PARKINSON'S DISEASE
     Dosage: 10 MG/DAY

REACTIONS (3)
  - DRUG INEFFECTIVE FOR UNAPPROVED INDICATION [None]
  - MOVEMENT DISORDER [None]
  - PATHOLOGICAL GAMBLING [None]
